FAERS Safety Report 8099221-9 (Version None)
Quarter: 2012Q1

REPORT INFORMATION
  Report Type: 
  Country: None (occurrence: None)
  Receive Date: 20120129
  Receipt Date: 20111005
  Transmission Date: 20120608
  Serious: No
  Sender: FDA-Public Use
  Company Number: US-ABBOTT-11P-163-0861272-00

PATIENT
  Sex: Female
  Weight: 69.462 kg

DRUGS (10)
  1. POTASSIUM [Concomitant]
     Indication: MINERAL SUPPLEMENTATION
  2. PREDNISONE TAB [Concomitant]
     Indication: RHEUMATOID ARTHRITIS
  3. CALCIUM [Concomitant]
     Indication: MINERAL SUPPLEMENTATION
  4. ATENOLOL [Concomitant]
     Indication: HYPERTENSION
  5. PREVACID [Concomitant]
     Indication: GASTROOESOPHAGEAL REFLUX DISEASE
  6. BENICAR HCT [Concomitant]
     Indication: HYPERTENSION
  7. HUMIRA [Suspect]
     Indication: RHEUMATOID ARTHRITIS
     Dates: start: 20110301
  8. WARFARIN SODIUM [Concomitant]
     Indication: CEREBROVASCULAR ACCIDENT
  9. ASCORBIC ACID [Concomitant]
     Indication: VITAMIN SUPPLEMENTATION
  10. METHOTREXATE [Concomitant]
     Indication: RHEUMATOID ARTHRITIS

REACTIONS (3)
  - EYE OEDEMA [None]
  - HERPES ZOSTER [None]
  - TENDERNESS [None]
